FAERS Safety Report 8474640-7 (Version None)
Quarter: 2012Q2

REPORT INFORMATION
  Report Type: 
  Country: None (occurrence: None)
  Receive Date: 20120628
  Receipt Date: 20120619
  Transmission Date: 20120825
  Serious: Yes (Other)
  Sender: FDA-Public Use
  Company Number: CA-JNJFOC-20120609383

PATIENT
  Sex: Male
  Weight: 90.3 kg

DRUGS (1)
  1. REMICADE [Suspect]
     Indication: CROHN'S DISEASE
     Dosage: L2-L3 ONCE EVERY 8 WEEKS
     Route: 042
     Dates: start: 20120604

REACTIONS (1)
  - SYNCOPE [None]
